FAERS Safety Report 24574939 (Version 2)
Quarter: 2024Q4

REPORT INFORMATION
  Report Type: Spontaneous
  Country: PL (occurrence: PL)
  Receive Date: 20241104
  Receipt Date: 20241127
  Transmission Date: 20250115
  Serious: Yes (Other)
  Sender: ACCORD
  Company Number: PL-Accord-454128

PATIENT
  Age: 61 Year
  Sex: Female

DRUGS (3)
  1. BUPROPION HYDROCHLORIDE [Suspect]
     Active Substance: BUPROPION HYDROCHLORIDE
     Indication: Depression
     Dosage: ONE TABLET PER DAY
     Route: 048
     Dates: start: 2022
  2. IBUPROFEN [Concomitant]
     Active Substance: IBUPROFEN
     Dosage: ONE TO THREE
  3. Novalgin [Concomitant]

REACTIONS (1)
  - Haemolysis [Unknown]

NARRATIVE: CASE EVENT DATE: 20241001
